FAERS Safety Report 9800977 (Version 2)
Quarter: 2014Q1

REPORT INFORMATION
  Report Type: Spontaneous
  Country: DE (occurrence: DE)
  Receive Date: 20140107
  Receipt Date: 20140203
  Transmission Date: 20141002
  Serious: Yes (Other)
  Sender: FDA-Public Use
  Company Number: DE-ASTELLAS-2013EU011648

PATIENT
  Sex: Male

DRUGS (2)
  1. PROGRAF [Suspect]
     Dosage: 5 MG, BID
     Route: 048
     Dates: start: 20131204, end: 20131213
  2. PROGRAF [Suspect]
     Dosage: 1 MG, BID
     Route: 048
     Dates: start: 20131204, end: 20131213

REACTIONS (8)
  - Overdose [Recovering/Resolving]
  - Renal function test abnormal [Recovering/Resolving]
  - Condition aggravated [Recovering/Resolving]
  - Muscle spasms [Recovering/Resolving]
  - Oedema peripheral [Recovering/Resolving]
  - Renal failure [Recovering/Resolving]
  - Abdominal pain upper [Recovering/Resolving]
  - Nausea [Unknown]
